FAERS Safety Report 5942296-0 (Version None)
Quarter: 2008Q4

REPORT INFORMATION
  Report Type: 
  Country: None (occurrence: None)
  Receive Date: 20081105
  Receipt Date: 20081029
  Transmission Date: 20090506
  Serious: Yes (Other)
  Sender: FDA-Public Use
  Company Number: GB-ABBOTT-08P-167-0484658-00

PATIENT
  Age: 61 Year
  Sex: Female

DRUGS (4)
  1. VALPROATE SODIUM [Suspect]
     Indication: BIPOLAR DISORDER
     Route: 048
     Dates: start: 20080515
  2. ZUCLOPENTHIXOL [Suspect]
     Indication: BIPOLAR DISORDER
     Route: 030
     Dates: start: 20080515
  3. ZUCLOPENTHIXOL [Suspect]
     Route: 028
     Dates: start: 20080501
  4. LEVOTHYROXINE SODIUM [Concomitant]
     Indication: HYPOTHYROIDISM
     Route: 048

REACTIONS (2)
  - DYSTONIA [None]
  - HEAD TITUBATION [None]
